FAERS Safety Report 4989079-6 (Version None)
Quarter: 2006Q1

REPORT INFORMATION
  Report Type: 
  Country: None (occurrence: None)
  Receive Date: 20060314
  Receipt Date: 20051228
  Transmission Date: 20060701
  Serious: Yes (Other)
  Sender: FDA-Public Use
  Company Number: 200514323BCC

PATIENT
  Age: 51 Year
  Sex: Female
  Weight: 70.3075 kg

DRUGS (2)
  1. ALEVE (CAPLET) [Suspect]
     Indication: BACK PAIN
     Dosage: 440 MG, ONCE, ORAL
     Route: 048
     Dates: start: 20051025
  2. ALEVE (CAPLET) [Suspect]
     Indication: HEADACHE
     Dosage: 440 MG, ONCE, ORAL
     Route: 048
     Dates: start: 20051025

REACTIONS (14)
  - CHILLS [None]
  - DYSPHAGIA [None]
  - DYSPNOEA [None]
  - HEADACHE [None]
  - HYPERSENSITIVITY [None]
  - OCULAR DISCOMFORT [None]
  - PALLOR [None]
  - PRURITUS GENERALISED [None]
  - RASH [None]
  - SKIN DISCOLOURATION [None]
  - SWELLING [None]
  - TRACHEAL OBSTRUCTION [None]
  - TREMOR [None]
  - URTICARIA GENERALISED [None]
